FAERS Safety Report 7427046-3 (Version None)
Quarter: 2011Q2

REPORT INFORMATION
  Report Type: 
  Country: None (occurrence: None)
  Receive Date: 20110420
  Receipt Date: 20110415
  Transmission Date: 20111010
  Serious: Yes (Other)
  Sender: FDA-Public Use
  Company Number: BR-PFIZER INC-2011083191

PATIENT
  Age: 55 Year
  Sex: Female
  Weight: 55 kg

DRUGS (3)
  1. ESCITALOPRAM [Interacting]
     Indication: DEPRESSION
     Dosage: UNK
     Dates: start: 19960101
  2. DEPAKOTE [Interacting]
     Indication: DEPRESSION
     Dosage: UNK
     Dates: start: 19960101
  3. CHAMPIX [Suspect]
     Indication: TOBACCO USER
     Dosage: 0.5 MG, 1X/DAY
     Route: 048
     Dates: start: 20110321, end: 20110101

REACTIONS (2)
  - VOMITING [None]
  - WEIGHT DECREASED [None]
